FAERS Safety Report 5452038-3 (Version None)
Quarter: 2007Q3

REPORT INFORMATION
  Report Type: 
  Country: None (occurrence: None)
  Receive Date: 20070912
  Receipt Date: 20070827
  Transmission Date: 20080115
  Serious: Yes (Other)
  Sender: FDA-Public Use
  Company Number: 2007US002049

PATIENT
  Age: 11 Month
  Sex: Male

DRUGS (6)
  1. PROGRAF [Suspect]
     Indication: OFF LABEL USE
     Dosage: 0.15 MG/KG, UID/QD, ORAL; 0.05 MG/KG, UID/QD, ORAL
     Route: 048
  2. PROTOPIC [Suspect]
     Indication: OFF LABEL USE
     Dosage: TOPICAL
     Route: 061
  3. MYCOPHENOLATE MOFETIL [Concomitant]
  4. INFLIXIMAB (INFLIXIMAB) [Concomitant]
  5. DACLIZUMAB (DACLIZUMAB) [Concomitant]
  6. THYMOGLOBULIN [Concomitant]

REACTIONS (2)
  - DIARRHOEA [None]
  - DRUG TOXICITY [None]
